FAERS Safety Report 6774893-7 (Version None)
Quarter: 2010Q2

REPORT INFORMATION
  Report Type: 
  Country: None (occurrence: None)
  Receive Date: 20100616
  Receipt Date: 20100616
  Transmission Date: 20101027
  Serious: Yes (Life-Threatening)
  Sender: FDA-Public Use
  Company Number: None

PATIENT
  Age: 45 Year
  Sex: Male
  Weight: 112.4921 kg

DRUGS (1)
  1. HALOPERIDOL [Suspect]
     Indication: MANIA
     Dosage: HALDOL DEC GIVEN ONCE IM
     Route: 030
     Dates: start: 20100303, end: 20100403

REACTIONS (4)
  - AKATHISIA [None]
  - EMOTIONAL DISTRESS [None]
  - HYPERTENSION [None]
  - IRRITABILITY [None]
